FAERS Safety Report 20756251 (Version 1)
Quarter: 2022Q2

REPORT INFORMATION
  Report Type: Spontaneous
  Country: IN (occurrence: IN)
  Receive Date: 20220427
  Receipt Date: 20220427
  Transmission Date: 20220721
  Serious: Yes (Hospitalization)
  Sender: FDA-Public Use
  Company Number: IN-MYLANLABS-2022M1030502

PATIENT
  Age: 81 Year
  Sex: Male

DRUGS (2)
  1. TIMOLOL [Suspect]
     Active Substance: TIMOLOL
     Indication: Glaucoma
     Dosage: UNK
     Route: 065
     Dates: start: 2012
  2. TRAVOPROST [Suspect]
     Active Substance: TRAVOPROST
     Indication: Glaucoma
     Dosage: UNK
     Route: 065
     Dates: start: 2012

REACTIONS (2)
  - Conjunctivitis [Recovering/Resolving]
  - Conjunctival scar [Recovering/Resolving]

NARRATIVE: CASE EVENT DATE: 20130101
